FAERS Safety Report 22374535 (Version 1)
Quarter: 2023Q2

REPORT INFORMATION
  Report Type: Spontaneous
  Country: AS (occurrence: AS)
  Receive Date: 20230526
  Receipt Date: 20230526
  Transmission Date: 20230721
  Serious: Yes (Hospitalization)
  Sender: FDA-Public Use
  Company Number: AS-GILEAD-2023-0629925

PATIENT
  Age: 33 Year
  Sex: Female

DRUGS (1)
  1. LENACAPAVIR [Suspect]
     Active Substance: LENACAPAVIR
     Indication: Product used for unknown indication
     Dosage: 20
     Route: 065

REACTIONS (1)
  - Nausea [Recovered/Resolved with Sequelae]
